FAERS Safety Report 6974961-0 (Version None)
Quarter: 2010Q3

REPORT INFORMATION
  Report Type: 
  Country: None (occurrence: None)
  Receive Date: 20100909
  Receipt Date: 20090107
  Transmission Date: 20110219
  Serious: No
  Sender: FDA-Public Use
  Company Number: US-WYE-H07702609

PATIENT
  Sex: Female
  Weight: 95.34 kg

DRUGS (3)
  1. DESVENLAFAXINE SUCCINATE MONOHYDRATE [Suspect]
     Indication: DEPRESSION
     Route: 048
     Dates: start: 20081216
  2. POTASSIUM [Concomitant]
  3. WELLBUTRIN [Suspect]
     Dosage: UNKNOWN
     Dates: start: 20080101

REACTIONS (1)
  - IRRITABILITY [None]
